FAERS Safety Report 8207654-2 (Version None)
Quarter: 2012Q1

REPORT INFORMATION
  Report Type: 
  Country: None (occurrence: None)
  Receive Date: 20120314
  Receipt Date: 20120314
  Transmission Date: 20120608
  Serious: Yes (Death)
  Sender: FDA-Public Use
  Company Number: None

PATIENT
  Age: 65 Year
  Sex: Male
  Weight: 116 kg

DRUGS (1)
  1. ADCIRCA [Suspect]
     Indication: PULMONARY HYPERTENSION
     Dosage: 40MG
     Route: 048
     Dates: start: 20110401, end: 20111226

REACTIONS (3)
  - DYSPNOEA [None]
  - COUGH [None]
  - OEDEMA PERIPHERAL [None]
